FAERS Safety Report 5135832-8 (Version None)
Quarter: 2006Q4

REPORT INFORMATION
  Report Type: 
  Country: None (occurrence: None)
  Receive Date: 20061026
  Receipt Date: 20061010
  Transmission Date: 20070319
  Serious: Yes (Other)
  Sender: FDA-Public Use
  Company Number: US-ELI_LILLY_AND_COMPANY-US200610001923

PATIENT
  Age: 53 Year
  Sex: Female

DRUGS (5)
  1. STRATTERA [Suspect]
     Indication: ATTENTION DEFICIT/HYPERACTIVITY DISORDER
     Dosage: 60 MG, UNK
     Dates: start: 20050426, end: 20050505
  2. STRATTERA [Suspect]
     Dosage: 120 MG, UNK
     Dates: start: 20050506, end: 20050701
  3. PAXIL [Concomitant]
     Dosage: 50 MG, UNK
  4. TRAZODONE HCL [Concomitant]
  5. KLONOPIN [Concomitant]

REACTIONS (19)
  - CHROMATURIA [None]
  - DRUG WITHDRAWAL SYNDROME [None]
  - DYSURIA [None]
  - ECONOMIC PROBLEM [None]
  - ERYTHEMA [None]
  - JAUNDICE [None]
  - MALAISE [None]
  - OCULAR ICTERUS [None]
  - PRESCRIBED OVERDOSE [None]
  - SKIN DISCOLOURATION [None]
  - SKIN DISORDER [None]
  - STRESS [None]
  - SUICIDE ATTEMPT [None]
  - TREATMENT NONCOMPLIANCE [None]
  - URETHRAL DISORDER [None]
  - URETHRAL PAIN [None]
  - URETHRITIS [None]
  - URINARY RETENTION [None]
  - URINARY TRACT INFECTION [None]
